FAERS Safety Report 10060559 (Version 2)
Quarter: 2014Q2

REPORT INFORMATION
  Report Type: Spontaneous
  Country: IN (occurrence: IN)
  Receive Date: 20140404
  Receipt Date: 20140404
  Transmission Date: 20141212
  Serious: Yes (Other)
  Sender: FDA-Public Use
  Company Number: IN-ABBVIE-14P-078-1218019-00

PATIENT
  Age: 54 Year
  Sex: Female
  Weight: 70 kg

DRUGS (2)
  1. THYRONORM [Suspect]
     Indication: HYPOTHYROIDISM
     Route: 048
     Dates: start: 2004, end: 20140227
  2. METFORMIN [Concomitant]
     Indication: TYPE 2 DIABETES MELLITUS
     Route: 048
     Dates: end: 201403

REACTIONS (3)
  - Flatulence [Recovered/Resolved]
  - Hepatic steatosis [Unknown]
  - Drug intolerance [Unknown]
